FAERS Safety Report 20902183 (Version 1)
Quarter: 2022Q2

REPORT INFORMATION
  Report Type: Spontaneous
  Country: IT (occurrence: IT)
  Receive Date: 20220601
  Receipt Date: 20220601
  Transmission Date: 20220721
  Serious: Yes (Other)
  Sender: FDA-Public Use
  Company Number: None

PATIENT
  Age: 52 Year
  Sex: Male

DRUGS (1)
  1. RIFADIN [Suspect]
     Active Substance: RIFAMPIN
     Indication: Infection
     Dosage: 600 MG
     Dates: start: 20220508

REACTIONS (7)
  - Ocular hyperaemia [Recovering/Resolving]
  - Erythema [Recovering/Resolving]
  - Paraesthesia [Recovering/Resolving]
  - Tachycardia [Recovering/Resolving]
  - Nasal oedema [Recovering/Resolving]
  - Dyspnoea [Recovering/Resolving]
  - Pruritus [Recovering/Resolving]

NARRATIVE: CASE EVENT DATE: 20220508
